FAERS Safety Report 14222150 (Version 2)
Quarter: 2018Q1

REPORT INFORMATION
  Report Type: Spontaneous
  Country: US (occurrence: US)
  Receive Date: 20171124
  Receipt Date: 20180207
  Transmission Date: 20180508
  Serious: Yes (Death, Hospitalization)
  Sender: FDA-Public Use
  Company Number: US-WEST-WARD PHARMACEUTICALS CORP.-US-H14001-17-04460

PATIENT
  Sex: Male
  Weight: 118 kg

DRUGS (3)
  1. ENZALUTAMIDE [Suspect]
     Active Substance: ENZALUTAMIDE
     Indication: PROSTATE CANCER
     Route: 048
     Dates: start: 20160521, end: 20161024
  2. PREDNISONE. [Suspect]
     Active Substance: PREDNISONE
     Indication: PROSTATE CANCER
     Route: 048
     Dates: start: 20160521, end: 20161024
  3. ABIRATERONE ACETATE. [Suspect]
     Active Substance: ABIRATERONE ACETATE
     Indication: PROSTATE CANCER
     Route: 048
     Dates: start: 20160521, end: 20161024

REACTIONS (7)
  - Diffuse large B-cell lymphoma [Fatal]
  - Sepsis [Fatal]
  - Fall [Recovered/Resolved]
  - Urinary tract infection enterococcal [Recovered/Resolved]
  - Hypercalcaemia [Recovered/Resolved]
  - Muscular weakness [Recovered/Resolved]
  - Septic embolus [Fatal]

NARRATIVE: CASE EVENT DATE: 2016
